FAERS Safety Report 20383988 (Version 2)
Quarter: 2022Q1

REPORT INFORMATION
  Report Type: Spontaneous
  Country: NL (occurrence: NL)
  Receive Date: 20220127
  Receipt Date: 20220210
  Transmission Date: 20220424
  Serious: Yes (Death)
  Sender: FDA-Public Use
  Company Number: NL-TEVA-2022-NL-2000967

PATIENT
  Sex: Female

DRUGS (2)
  1. VALPROIC ACID [Suspect]
     Active Substance: VALPROIC ACID
     Indication: Epilepsy
     Dosage: 1200 MG
     Route: 065
  2. CARBAMAZEPINE [Concomitant]
     Active Substance: CARBAMAZEPINE
     Indication: Generalised tonic-clonic seizure
     Dosage: 1000 MG
     Route: 065

REACTIONS (1)
  - Drug ineffective [Fatal]
